FAERS Safety Report 14861435 (Version 1)
Quarter: 2018Q2

REPORT INFORMATION
  Report Type: Spontaneous
  Country: CN (occurrence: CN)
  Receive Date: 20180508
  Receipt Date: 20180508
  Transmission Date: 20180711
  Serious: Yes (Hospitalization, Other)
  Sender: FDA-Public Use
  Company Number: CN-PFIZER INC-2018184528

PATIENT
  Age: 64 Year
  Sex: Female
  Weight: 62 kg

DRUGS (2)
  1. RESERPINE COMPOUND /00005801/ [Concomitant]
     Indication: HYPERTENSION
     Dosage: 1 TABLET A TIME, BID
  2. PREGABALIN. [Suspect]
     Active Substance: PREGABALIN
     Indication: TRIGEMINAL NEURALGIA
     Dosage: 75 MG, 2X/DAY (BID)
     Route: 048
     Dates: start: 20180205, end: 20180221

REACTIONS (2)
  - Hepatitis C [Recovering/Resolving]
  - Product use in unapproved indication [Unknown]

NARRATIVE: CASE EVENT DATE: 20180205
